FAERS Safety Report 7750330-0 (Version None)
Quarter: 2011Q3

REPORT INFORMATION
  Report Type: 
  Country: None (occurrence: None)
  Receive Date: 20110914
  Receipt Date: 20110912
  Transmission Date: 20111222
  Serious: Yes (Death, Hospitalization, Other)
  Sender: FDA-Public Use
  Company Number: VE-PFIZER INC-2011208039

PATIENT
  Age: 73 Year
  Sex: Male

DRUGS (5)
  1. LIPITOR [Suspect]
     Indication: HYPERCHOLESTEROLAEMIA
     Dosage: 80 MG, 1X/DAY
     Route: 048
  2. AMLODIPINE [Concomitant]
     Indication: HYPERTENSION
     Dosage: 5 MG, 1X/DAY
     Route: 048
  3. DI-EUDRIN [Concomitant]
     Indication: DIURETIC THERAPY
     Dosage: 25 MG, 1X/DAY
     Route: 048
  4. ATACAND [Concomitant]
     Indication: HYPERTENSION
     Dosage: 8 MG, 1X/DAY
     Route: 048
  5. OMEPRAZOLE [Concomitant]
     Indication: PROPHYLAXIS
     Dosage: 40 MG, 1X/DAY
     Route: 048

REACTIONS (3)
  - FALL [None]
  - BRAIN OEDEMA [None]
  - PANCREATITIS [None]
